FAERS Safety Report 23093553 (Version 2)
Quarter: 2025Q2

REPORT INFORMATION
  Report Type: Other
  Country: CA (occurrence: CA)
  Receive Date: 20231023
  Receipt Date: 20250517
  Transmission Date: 20250716
  Serious: Yes (Death, Other)
  Sender: CELLTRION
  Company Number: CA-CELLTRION INC.-2023CA020120

PATIENT

DRUGS (5)
  1. RITUXIMAB [Suspect]
     Active Substance: RITUXIMAB
     Indication: Familial haemophagocytic lymphohistiocytosis
     Route: 065
  2. CYCLOSPORINE [Suspect]
     Active Substance: CYCLOSPORINE
     Indication: Familial haemophagocytic lymphohistiocytosis
     Route: 065
  3. DEXAMETHASONE SODIUM PHOSPHATE [Suspect]
     Active Substance: DEXAMETHASONE SODIUM PHOSPHATE
     Indication: Familial haemophagocytic lymphohistiocytosis
     Route: 065
  4. ETOPOSIDE [Suspect]
     Active Substance: ETOPOSIDE
     Indication: Familial haemophagocytic lymphohistiocytosis
     Route: 065
  5. NIFEDIPINE [Suspect]
     Active Substance: NIFEDIPINE
     Indication: Hypertension
     Route: 065

REACTIONS (5)
  - Death [Fatal]
  - Infection [Fatal]
  - Drug ineffective [Fatal]
  - Off label use [Fatal]
  - Intentional product use issue [Unknown]
